FAERS Safety Report 9770217 (Version 1)
Quarter: 2013Q4

REPORT INFORMATION
  Report Type: Spontaneous
  Country: CA (occurrence: CA)
  Receive Date: 20131218
  Receipt Date: 20131218
  Transmission Date: 20140711
  Serious: Yes (Other)
  Sender: FDA-Public Use
  Company Number: CA-BAXTER-2013BAX049975

PATIENT
  Age: 52 Year
  Sex: Female

DRUGS (3)
  1. DIANEAL PD4 SOLUTION WITH 1.5% DEXTROSE AND 2.5 MEQ/L CALCIUM [Suspect]
     Indication: RENAL FAILURE
     Route: 033
     Dates: start: 2009
  2. DIANEAL PD4 SOLUTION WITH 2.5% DEXTROSE AND 2.5 MEQ/L CALCIUM [Suspect]
     Indication: RENAL FAILURE
     Route: 033
     Dates: start: 2009
  3. CITALOPRAM [Concomitant]
     Indication: ANXIETY
     Dosage: 1 TABLET
     Route: 048
     Dates: start: 2012

REACTIONS (3)
  - Blood pressure fluctuation [Recovered/Resolved]
  - Panic attack [Recovered/Resolved]
  - Hypertension [Recovered/Resolved]
